FAERS Safety Report 9394813 (Version 1)
Quarter: 2013Q3

REPORT INFORMATION
  Report Type: Spontaneous
  Country: US (occurrence: None)
  Receive Date: 20130709
  Receipt Date: 20130709
  Transmission Date: 20140515
  Serious: No
  Sender: FDA-Public Use
  Company Number: None

PATIENT
  Age: 77 None
  Sex: Female

DRUGS (10)
  1. VESICARE [Suspect]
     Indication: NOCTURIA
     Route: 048
     Dates: end: 20130701
  2. PLAVIX [Concomitant]
  3. DIAZAPAM [Concomitant]
  4. HYDROCODONE [Concomitant]
  5. LYRICA [Concomitant]
  6. ESCITALOPRAM [Concomitant]
  7. FUROSEMIDE [Concomitant]
  8. KLOR-CON 8MEO [Concomitant]
  9. VITAMIN B COMPLEX [Concomitant]
  10. MUTIPLE DAILY VITAMIN [Concomitant]

REACTIONS (3)
  - Dizziness [None]
  - Hangover [None]
  - Memory impairment [None]
